FAERS Safety Report 6628288-7 (Version None)
Quarter: 2010Q1

REPORT INFORMATION
  Report Type: 
  Country: None (occurrence: None)
  Receive Date: 20100311
  Receipt Date: 20100304
  Transmission Date: 20100710
  Serious: Yes (Hospitalization)
  Sender: FDA-Public Use
  Company Number: US-EISAI INC.-E7272-00050-SPO-US

PATIENT
  Sex: Female

DRUGS (1)
  1. ONTAK [Suspect]
     Dosage: UNKNOWN
     Route: 041
     Dates: start: 20100301

REACTIONS (1)
  - HYPERTENSION [None]
